FAERS Safety Report 19481117 (Version 6)
Quarter: 2022Q1

REPORT INFORMATION
  Report Type: Report from Study
  Country: US (occurrence: US)
  Receive Date: 20210701
  Receipt Date: 20220130
  Transmission Date: 20220424
  Serious: Yes (Death, Hospitalization)
  Sender: FDA-Public Use
  Company Number: US-BAXTER-2021BAX017623

PATIENT
  Age: 56 Year
  Sex: Female
  Weight: 56.6 kg

DRUGS (62)
  1. CYCLOPHOSPHAMIDE [Suspect]
     Active Substance: CYCLOPHOSPHAMIDE
     Indication: Plasma cell myeloma
     Dosage: DOSAGE FORM: INJECTION FOR INFUSION; LYMPHODEPLETING CHEMOTHERAPY
     Route: 042
     Dates: start: 20210414, end: 20210416
  2. CYCLOPHOSPHAMIDE [Suspect]
     Active Substance: CYCLOPHOSPHAMIDE
     Indication: Disease progression
  3. FLUDARABINE [Suspect]
     Active Substance: FLUDARABINE PHOSPHATE
     Indication: Plasma cell myeloma
     Dosage: DOSAGE FORM: INJECTION FOR INFUSION; LYMPHODEPLETING CHEMOTHERAPY
     Route: 042
     Dates: start: 20210414, end: 20210416
  4. SODIUM CHLORIDE [Concomitant]
     Active Substance: SODIUM CHLORIDE
     Indication: Product used for unknown indication
     Dosage: 10-15 ML, Q12H
     Route: 042
     Dates: start: 20210426
  5. SODIUM CHLORIDE [Concomitant]
     Active Substance: SODIUM CHLORIDE
     Dosage: 20-25 ML/HR
     Route: 042
     Dates: start: 20210427, end: 20210427
  6. SODIUM CHLORIDE [Concomitant]
     Active Substance: SODIUM CHLORIDE
     Route: 042
     Dates: start: 20210427, end: 20210427
  7. SODIUM CHLORIDE [Concomitant]
     Active Substance: SODIUM CHLORIDE
     Route: 042
     Dates: start: 20210429, end: 20210429
  8. SODIUM CHLORIDE [Concomitant]
     Active Substance: SODIUM CHLORIDE
     Route: 042
     Dates: start: 20210430
  9. SODIUM CHLORIDE [Concomitant]
     Active Substance: SODIUM CHLORIDE
     Dosage: ROUTE: INTRA-CATHETER, DOSE: 10-15 ML
     Route: 050
     Dates: start: 20210505
  10. SODIUM CHLORIDE [Concomitant]
     Active Substance: SODIUM CHLORIDE
     Dosage: DOSE: 100-500 ML/HR
     Route: 042
     Dates: start: 20210507
  11. SODIUM CHLORIDE [Concomitant]
     Active Substance: SODIUM CHLORIDE
     Route: 042
     Dates: start: 20210507, end: 20210507
  12. SODIUM CHLORIDE [Concomitant]
     Active Substance: SODIUM CHLORIDE
     Route: 042
     Dates: start: 20210512, end: 20210512
  13. SODIUM CHLORIDE [Concomitant]
     Active Substance: SODIUM CHLORIDE
     Route: 042
     Dates: start: 20210512, end: 20210512
  14. SODIUM CHLORIDE [Concomitant]
     Active Substance: SODIUM CHLORIDE
     Route: 042
     Dates: start: 20210514, end: 20210514
  15. aluminum-magnesium hydroxide-simethicone [Concomitant]
     Indication: Product used for unknown indication
     Dosage: DOSAGE FORM: SUSPENSION; DOSE: 200 MG-200 MG-20 MG/5 ML
     Route: 048
     Dates: start: 20210426
  16. LACTATED RINGERS SOLUTION [Concomitant]
     Active Substance: CALCIUM CHLORIDE\POTASSIUM CHLORIDE\SODIUM CHLORIDE\SODIUM LACTATE
     Indication: Product used for unknown indication
     Dosage: DOSAGE FORM: INJECTION FOR INFUSION
     Route: 040
     Dates: start: 20210426, end: 20210426
  17. LACTATED RINGERS SOLUTION [Concomitant]
     Active Substance: CALCIUM CHLORIDE\POTASSIUM CHLORIDE\SODIUM CHLORIDE\SODIUM LACTATE
     Dosage: DOSAGE FORM: INJECTION FOR INFUSION
     Route: 042
     Dates: start: 20210427, end: 20210427
  18. LACTATED RINGERS SOLUTION [Concomitant]
     Active Substance: CALCIUM CHLORIDE\POTASSIUM CHLORIDE\SODIUM CHLORIDE\SODIUM LACTATE
     Dosage: DOSAGE FORM: INJECTION FOR INFUSION
     Route: 040
     Dates: start: 20210429, end: 20210429
  19. MAGNESIUM SULFATE [Concomitant]
     Active Substance: MAGNESIUM SULFATE
     Indication: Hypomagnesaemia
     Dosage: DOSAGE FORM: INJECTION FOR INFUSION
     Route: 042
     Dates: start: 20210428, end: 20210428
  20. MAGNESIUM SULFATE [Concomitant]
     Active Substance: MAGNESIUM SULFATE
     Dosage: DOSAGE FORM: INJECTION FOR INFUSION
     Route: 042
     Dates: start: 20210430, end: 20210430
  21. MAGNESIUM SULFATE [Concomitant]
     Active Substance: MAGNESIUM SULFATE
     Dosage: DOSAGE FORM: INJECTION FOR INFUSION
     Route: 042
     Dates: start: 20210503, end: 20210503
  22. MAGNESIUM SULFATE [Concomitant]
     Active Substance: MAGNESIUM SULFATE
     Dosage: DOSAGE FORM: INJECTION FOR INFUSION
     Route: 042
     Dates: start: 20210510, end: 20210510
  23. MAGNESIUM SULFATE [Concomitant]
     Active Substance: MAGNESIUM SULFATE
     Dosage: DOSAGE FORM: INJECTION FOR INFUSION
     Route: 042
     Dates: start: 20210514, end: 20210514
  24. MAGNESIUM SULFATE [Concomitant]
     Active Substance: MAGNESIUM SULFATE
     Dosage: AS NEEDED, IV
     Route: 042
  25. ACETAMINOPHEN [Concomitant]
     Active Substance: ACETAMINOPHEN
     Indication: Product used for unknown indication
     Dosage: DOSAGE FORM: TABLETS
     Route: 048
     Dates: start: 20210427
  26. ACETAMINOPHEN [Concomitant]
     Active Substance: ACETAMINOPHEN
     Dosage: DOSAGE FORM: TABLETS
     Route: 042
     Dates: start: 20210519
  27. CEFEPIME [Concomitant]
     Active Substance: CEFEPIME HYDROCHLORIDE
     Indication: Product used for unknown indication
     Route: 042
     Dates: start: 20210426
  28. CARVEDILOL [Concomitant]
     Active Substance: CARVEDILOL
     Indication: Ventricular dysfunction
     Dosage: WITH MEALS; DOSAGE FORM: TABLETS
     Route: 048
     Dates: start: 20210426
  29. CARVEDILOL [Concomitant]
     Active Substance: CARVEDILOL
     Route: 048
     Dates: start: 20210115
  30. PROPOFOL [Concomitant]
     Active Substance: PROPOFOL
     Indication: Product used for unknown indication
     Dosage: DOSAGE FORM: EMULSION
     Route: 042
     Dates: start: 20210519
  31. PROPOFOL [Concomitant]
     Active Substance: PROPOFOL
     Dosage: DOSAGE FORM: EMULSION
     Route: 042
     Dates: start: 20210519
  32. PROPOFOL [Concomitant]
     Active Substance: PROPOFOL
     Dosage: DOSAGE FORM: EMULSION
     Route: 042
     Dates: start: 20210519
  33. LORAZEPAM [Concomitant]
     Active Substance: LORAZEPAM
     Indication: Anxiety
     Dosage: DOSAGE FORM: TABLETS
     Route: 048
     Dates: start: 20210426
  34. LIDOCAINE [Concomitant]
     Active Substance: LIDOCAINE
     Indication: Bone pain
     Dosage: POULTICE OR PATCH: 1 PATCH
     Route: 062
     Dates: start: 20210426
  35. LIDOCAINE [Concomitant]
     Active Substance: LIDOCAINE
     Indication: Back pain
     Dosage: POULTICE OR PATCH; ROUTE: INFILTRATION
     Route: 050
     Dates: start: 20210519
  36. LIDOCAINE [Concomitant]
     Active Substance: LIDOCAINE
     Dosage: POULTICE OR PATCH
     Route: 042
     Dates: start: 20210519
  37. LIDOCAINE [Concomitant]
     Active Substance: LIDOCAINE
     Dosage: POULTICE OR PATCH: 1 PATCH
     Route: 062
     Dates: start: 20210420
  38. ALBUMIN HUMAN [Concomitant]
     Active Substance: ALBUMIN HUMAN
     Indication: Product used for unknown indication
     Route: 042
     Dates: start: 20210427, end: 20210427
  39. GABAPENTIN [Concomitant]
     Active Substance: GABAPENTIN
     Indication: Neuropathy peripheral
     Route: 048
     Dates: start: 20210426
  40. GABAPENTIN [Concomitant]
     Active Substance: GABAPENTIN
     Route: 048
     Dates: start: 201902
  41. FILGRASTIM-AAFI [Concomitant]
     Active Substance: FILGRASTIM-AAFI
     Indication: Product used for unknown indication
     Route: 058
     Dates: start: 20210428
  42. FILGRASTIM-AAFI [Concomitant]
     Active Substance: FILGRASTIM-AAFI
     Route: 058
     Dates: start: 20210503
  43. FILGRASTIM-AAFI [Concomitant]
     Active Substance: FILGRASTIM-AAFI
     Route: 058
     Dates: start: 20210507
  44. IMMUNE GLOBULIN NOS [Concomitant]
     Active Substance: IMMUNE GLOBULIN NOS
     Indication: Product used for unknown indication
     Dosage: DOSAGE FORM: INJECTION FOR INFUSION
     Route: 042
     Dates: start: 20210427
  45. ACYCLOVIR [Concomitant]
     Active Substance: ACYCLOVIR
     Indication: Product used for unknown indication
     Dosage: DOSAGE FORM: TABLETS
     Route: 048
     Dates: start: 20210426
  46. FLUDEOXYGLUCOSE F-18 [Concomitant]
     Active Substance: FLUDEOXYGLUCOSE F-18
     Indication: Product used for unknown indication
     Route: 042
     Dates: start: 20210519, end: 20210519
  47. TRAMADOL [Concomitant]
     Active Substance: TRAMADOL
     Indication: Bone pain
     Dosage: DOSAGE FORM: TABLETS
     Route: 048
     Dates: start: 20210426
  48. TRAMADOL [Concomitant]
     Active Substance: TRAMADOL
     Dosage: AS NEEDED
     Route: 048
     Dates: start: 2019
  49. DIPHENHYDRAMINE [Concomitant]
     Active Substance: DIPHENHYDRAMINE
     Indication: Product used for unknown indication
     Route: 048
     Dates: start: 20210427, end: 20210427
  50. BACTRIM [Concomitant]
     Active Substance: SULFAMETHOXAZOLE\TRIMETHOPRIM
     Indication: Infection prophylaxis
     Dosage: DOSAGE FORM: TABLETS; DOSE: 800/160 MG
     Route: 048
     Dates: start: 20210426
  51. BACTRIM [Concomitant]
     Active Substance: SULFAMETHOXAZOLE\TRIMETHOPRIM
     Dosage: DOSAGE FORM: TABLETS; DOSE: 800 - 160 MG
     Route: 048
     Dates: start: 202011
  52. CANNABIS SATIVA SUBSP. INDICA TOP [Concomitant]
     Active Substance: CANNABIS SATIVA SUBSP. INDICA TOP
     Indication: Pain
     Route: 065
     Dates: start: 2021
  53. CANNABIS SATIVA SUBSP. INDICA TOP [Concomitant]
     Active Substance: CANNABIS SATIVA SUBSP. INDICA TOP
     Indication: Increased appetite
  54. TOCILIZUMAB [Concomitant]
     Active Substance: TOCILIZUMAB
     Indication: Product used for unknown indication
     Route: 065
  55. VALACYCLOVIR [Concomitant]
     Active Substance: VALACYCLOVIR HYDROCHLORIDE
     Indication: Infection prophylaxis
     Route: 065
  56. VALACYCLOVIR [Concomitant]
     Active Substance: VALACYCLOVIR HYDROCHLORIDE
     Route: 048
     Dates: start: 20210719
  57. VALACYCLOVIR [Concomitant]
     Active Substance: VALACYCLOVIR HYDROCHLORIDE
     Route: 048
     Dates: start: 20210405
  58. CYANOCOBALAMIN [Concomitant]
     Active Substance: CYANOCOBALAMIN
     Indication: Anaemia
     Route: 030
     Dates: start: 20210115
  59. FAMOTIDINE [Concomitant]
     Active Substance: FAMOTIDINE
     Indication: Gastrooesophageal reflux disease
     Dosage: AS NEEDED
     Route: 048
     Dates: start: 202002
  60. CANNABIS SATIVA SUBSP. INDICA TOP [Concomitant]
     Active Substance: CANNABIS SATIVA SUBSP. INDICA TOP
     Indication: Bone pain
     Dosage: ROUTE: INHALANT, FREQUENCY: AS NEEDED
     Route: 050
  61. CANNABIS SATIVA SUBSP. INDICA TOP [Concomitant]
     Active Substance: CANNABIS SATIVA SUBSP. INDICA TOP
     Indication: Back pain
  62. ERGOCALCIFEROL [Concomitant]
     Active Substance: ERGOCALCIFEROL
     Indication: Prophylaxis
     Dosage: DOSE: 50,000 UNITS
     Route: 048
     Dates: start: 20210201

REACTIONS (4)
  - Extradural haematoma [Fatal]
  - Disease progression [Fatal]
  - Subdural haematoma [Recovered/Resolved]
  - Sepsis [Recovered/Resolved]

NARRATIVE: CASE EVENT DATE: 20210523
